FAERS Safety Report 11513506 (Version 2)
Quarter: 2015Q4

REPORT INFORMATION
  Report Type: Report from Study
  Country: US (occurrence: US)
  Receive Date: 20150916
  Receipt Date: 20151228
  Transmission Date: 20160304
  Serious: Yes (Other)
  Sender: FDA-Public Use
  Company Number: PHEH2015US013041

PATIENT
  Sex: Female
  Weight: 102 kg

DRUGS (6)
  1. GILENYA [Suspect]
     Active Substance: FINGOLIMOD HYDROCHLORIDE
     Indication: MULTIPLE SCLEROSIS
     Dosage: 0.5 MG, QD
     Route: 048
  2. VITAMIN B12 [Concomitant]
     Active Substance: CYANOCOBALAMIN
     Indication: VITAMIN B12 DEFICIENCY
     Route: 065
  3. TIZANIDINE. [Concomitant]
     Active Substance: TIZANIDINE
     Indication: MUSCLE SPASTICITY
     Dosage: UNK, QD (AT NIGHT)
     Route: 065
  4. LUTEIN [Concomitant]
     Active Substance: LUTEIN
     Indication: PRODUCT USED FOR UNKNOWN INDICATION
     Route: 065
  5. VITAMIN D3 [Concomitant]
     Active Substance: CHOLECALCIFEROL
     Indication: VITAMIN D DEFICIENCY
     Route: 065
  6. BACLOFEN. [Concomitant]
     Active Substance: BACLOFEN
     Indication: MUSCLE SPASTICITY
     Dosage: UNK, QD (AT NIGHT)
     Route: 065

REACTIONS (18)
  - Multiple sclerosis relapse [Unknown]
  - Paraparesis [Unknown]
  - Hemiparesis [Unknown]
  - Ataxia [Unknown]
  - Muscle spasticity [Not Recovered/Not Resolved]
  - Vision blurred [Unknown]
  - Vitamin B12 deficiency [Unknown]
  - Muscular weakness [Unknown]
  - Coordination abnormal [Unknown]
  - Nausea [Unknown]
  - Optic atrophy [Unknown]
  - Fatigue [Not Recovered/Not Resolved]
  - Ligament sprain [Unknown]
  - Vitamin D deficiency [Unknown]
  - Anaemia [Unknown]
  - Joint range of motion decreased [Unknown]
  - Balance disorder [Unknown]
  - Concomitant disease aggravated [Unknown]

NARRATIVE: CASE EVENT DATE: 2006
